FAERS Safety Report 12134221 (Version 1)
Quarter: 2016Q1

REPORT INFORMATION
  Report Type: Spontaneous
  Country: US (occurrence: US)
  Receive Date: 20160301
  Receipt Date: 20160301
  Transmission Date: 20160526
  Serious: No
  Sender: FDA-Public Use
  Company Number: US-GLAXOSMITHKLINE-US2016GSK026879

PATIENT
  Age: 55 Year
  Sex: Female
  Weight: 116.55 kg

DRUGS (5)
  1. FLOLAN [Suspect]
     Active Substance: EPOPROSTENOL SODIUM
     Indication: PRODUCT USED FOR UNKNOWN INDICATION
     Dosage: UNK, U
     Route: 065
  2. REVATIO [Suspect]
     Active Substance: SILDENAFIL CITRATE
     Indication: PRODUCT USED FOR UNKNOWN INDICATION
     Dosage: UNK, U
     Route: 065
  3. LETAIRIS [Suspect]
     Active Substance: AMBRISENTAN
     Indication: PRODUCT USED FOR UNKNOWN INDICATION
     Dosage: 10 MG, QD
     Route: 048
     Dates: start: 20071128
  4. ORENITRAM [Suspect]
     Active Substance: TREPROSTINIL
     Indication: PULMONARY ARTERIAL HYPERTENSION
     Dosage: 0.125 MG, TID
     Route: 048
     Dates: start: 20151209
  5. WARFARIN [Concomitant]
     Active Substance: WARFARIN

REACTIONS (15)
  - Restless legs syndrome [Unknown]
  - Limb discomfort [Unknown]
  - Nasal discomfort [Unknown]
  - Incorrect dose administered [Unknown]
  - Back pain [Recovering/Resolving]
  - Headache [Unknown]
  - Pain in extremity [Unknown]
  - Nasal congestion [Unknown]
  - Constipation [Unknown]
  - Feeling abnormal [Recovered/Resolved]
  - Palpitations [Unknown]
  - Pain in jaw [Unknown]
  - Nausea [Unknown]
  - Oropharyngeal pain [Unknown]
  - Insomnia [Unknown]

NARRATIVE: CASE EVENT DATE: 201512
